FAERS Safety Report 21646762 (Version 1)
Quarter: 2022Q4

REPORT INFORMATION
  Report Type: Spontaneous
  Country: BE (occurrence: BE)
  Receive Date: 20221127
  Receipt Date: 20221127
  Transmission Date: 20230112
  Serious: Yes (Hospitalization, Other)
  Sender: FDA-Public Use
  Company Number: None

PATIENT
  Age: 31 Year
  Sex: Female
  Weight: 60 kg

DRUGS (11)
  1. DOCETAXEL [Suspect]
     Active Substance: DOCETAXEL
     Indication: Breast cancer
     Route: 065
  2. IMODIUM [Concomitant]
     Active Substance: LOPERAMIDE HYDROCHLORIDE
     Indication: Diarrhoea
     Dosage: IN CASE OF DIARRHEA TILL 8 CO / DAY, STRENGTH : 2 MG
  3. ZOLPIDEM [Concomitant]
     Active Substance: ZOLPIDEM TARTRATE
     Indication: Product used for unknown indication
     Dosage: 1 DOSAGE FORMS DAILY; EVENING, STRENGTH : 10 MG, UNIT DOSE : 1 DF, FREQUENCY : OD
  4. Paracetamol AB [Concomitant]
     Indication: Pain
     Dosage: DAILY EVERY 6H IN CASE OF PAIN, STRENGTH : 1000 MG
  5. XANAX [Concomitant]
     Active Substance: ALPRAZOLAM
     Indication: Insomnia
     Dosage: DAILY EVERY 6H IN CASE OF UNREST OR SLEEPLESSNESS, STRENGTH : 0.5 MG
  6. MOVICOL [Concomitant]
     Active Substance: POLYETHYLENE GLYCOL 3350\POTASSIUM CHLORIDE\SODIUM BICARBONATE\SODIUM CHLORIDE
     Indication: Constipation
     Dosage: 2 DOSAGE FORMS DAILY; 2 X / DAY 1 SACHET, IN CASE OF CONSTIPATION
  7. DECAPEPTYL [Concomitant]
     Indication: Product used for unknown indication
     Dosage: 1X/ 4 WEKEN IM, LAST RECEIVED ON 25/04/2022, STRENGTH : 3.75 MG S.R. UNIT DOSE :1 DF, FREQUENCY TIME
     Route: 030
  8. ALIZAPRIDE HYDROCHLORIDE [Concomitant]
     Active Substance: ALIZAPRIDE HYDROCHLORIDE
     Indication: Nausea
     Dosage: UNTIL 6 CO / DAY IN CASE OF NAUSEA, STRENGTH : 50MG
  9. Ibuprofen AB [Concomitant]
     Indication: Pain
     Dosage: DAILY 3X/DAY (07H - 15H - 23H), STRENGTH : 600 MG, UNIT DOSE : 3 DF , FREQUENCY : 3 TIMES A DAY
  10. Ibuprofen AB [Concomitant]
     Dosage: EVERY 8H IN CASE OF PAIN UNADEQUATELY CONTROLLED WITH PARACETAMOL, STRENGTH : 400 MG
  11. DEXAMETHASONE [Concomitant]
     Active Substance: DEXAMETHASONE
     Indication: Product used for unknown indication
     Dosage: 1 TABLET 12H AND 6H BEFORE CHEMO AND 1 TABLET 12H, 24H AND 36H AFTER CHEMO, STRENGTH : 8 MG

REACTIONS (5)
  - Dyspnoea [Recovered/Resolved]
  - Throat irritation [Recovered/Resolved]
  - Hypersensitivity [Recovered/Resolved]
  - Syncope [Recovered/Resolved]
  - Chest discomfort [Recovered/Resolved]

NARRATIVE: CASE EVENT DATE: 20220505
